FAERS Safety Report 9959513 (Version 1)
Quarter: 2014Q1

REPORT INFORMATION
  Report Type: Report from Study
  Country: US (occurrence: US)
  Receive Date: 20140305
  Receipt Date: 20140305
  Transmission Date: 20141002
  Serious: No
  Sender: FDA-Public Use
  Company Number: US-ABBVIE-13P-163-1106901-00

PATIENT
  Age: 25 Year
  Sex: Female

DRUGS (2)
  1. HUMIRA [Suspect]
     Indication: CROHN^S DISEASE
     Dosage: DAY 1
     Route: 058
     Dates: start: 20130604, end: 20130604
  2. HUMIRA [Suspect]
     Dosage: DAY 1
     Route: 058

REACTIONS (3)
  - Somnolence [Unknown]
  - Feeling drunk [Unknown]
  - Motion sickness [Unknown]
